FAERS Safety Report 10947403 (Version 1)
Quarter: 2015Q1

REPORT INFORMATION
  Report Type: Spontaneous
  Country: US (occurrence: None)
  Receive Date: 20150219
  Receipt Date: 20150219
  Transmission Date: 20150721
  Serious: Yes (Other)
  Sender: FDA-Public Use
  Company Number: 2014-14670

PATIENT
  Age: 21 Year
  Sex: Female
  Weight: 73 kg

DRUGS (3)
  1. GENERESS FE [Suspect]
     Active Substance: ETHINYL ESTRADIOL\FERROUS FUMARATE\NORETHINDRONE
     Indication: DYSMENORRHOEA
     Route: 048
     Dates: start: 2012
  2. CITALOPRAM (CITALOPRAM) [Concomitant]
     Active Substance: CITALOPRAM HYDROBROMIDE
  3. LEVOTHYROXINE [Concomitant]
     Active Substance: LEVOTHYROXINE

REACTIONS (6)
  - Uveitis [None]
  - Papilloedema [None]
  - Diarrhoea [None]
  - Ageusia [None]
  - Amenorrhoea [None]
  - Nausea [None]

NARRATIVE: CASE EVENT DATE: 201201
